FAERS Safety Report 7153805-0 (Version None)
Quarter: 2010Q4

REPORT INFORMATION
  Report Type: 
  Country: None (occurrence: None)
  Receive Date: 20101213
  Receipt Date: 20100127
  Transmission Date: 20110411
  Serious: No
  Sender: FDA-Public Use
  Company Number: US-ABBOTT-10P-163-0622287-00

PATIENT
  Sex: Female
  Weight: 98.518 kg

DRUGS (5)
  1. MERIDIA [Suspect]
     Indication: WEIGHT DECREASED
     Route: 048
     Dates: start: 20100124, end: 20100126
  2. EFFEXOR XR [Suspect]
     Indication: DEPRESSION
     Route: 048
     Dates: start: 20100116, end: 20100123
  3. EFFEXOR XR [Suspect]
     Route: 048
     Dates: end: 20100115
  4. NEXIUM [Concomitant]
     Indication: GASTROOESOPHAGEAL REFLUX DISEASE
     Route: 048
  5. LESCOL [Concomitant]
     Indication: BLOOD CHOLESTEROL INCREASED
     Dosage: DOSE UNKNOWN TO PT.
     Route: 048

REACTIONS (5)
  - CONFUSIONAL STATE [None]
  - DIZZINESS [None]
  - HEAD DISCOMFORT [None]
  - MALAISE [None]
  - NAUSEA [None]
